FAERS Safety Report 18797585 (Version 2)
Quarter: 2021Q1

REPORT INFORMATION
  Report Type: Report from Study
  Country: None (occurrence: IT)
  Receive Date: 20210128
  Receipt Date: 20210201
  Transmission Date: 20210419
  Serious: Yes (Hospitalization, Other)
  Sender: FDA-Public Use
  Company Number: IT-ABBVIE-21K-083-3748630-00

PATIENT
  Age: 75 Year
  Sex: Female

DRUGS (2)
  1. DUODOPA [Suspect]
     Active Substance: CARBIDOPA\LEVODOPA
     Indication: PARKINSON^S DISEASE
     Dosage: DAILY DOSE: 1036 MG; PUMP SETTING: MD: 6+3 CR: 2,3, ED: 4,5
     Route: 050
     Dates: start: 20210112
  2. DUODOPA [Suspect]
     Active Substance: CARBIDOPA\LEVODOPA

REACTIONS (3)
  - Pneumoperitoneum [Unknown]
  - Device dislocation [Unknown]
  - Abdominal rigidity [Unknown]

NARRATIVE: CASE EVENT DATE: 202101
